FAERS Safety Report 22093372 (Version 1)
Quarter: 2023Q1

REPORT INFORMATION
  Report Type: Spontaneous
  Country: US (occurrence: US)
  Receive Date: 20230314
  Receipt Date: 20230314
  Transmission Date: 20230418
  Serious: Yes (Hospitalization)
  Sender: FDA-Public Use
  Company Number: US-CATALYSTPHARMACEUTICALPARTNERS-2020-12

PATIENT
  Age: 17 Year
  Sex: Female

DRUGS (7)
  1. RUZURGI [Suspect]
     Active Substance: AMIFAMPRIDINE
     Indication: Congenital myasthenic syndrome
     Dosage: 10 MILLIGRAM, TID
     Route: 065
     Dates: start: 20161218
  2. RUZURGI [Suspect]
     Active Substance: AMIFAMPRIDINE
     Dosage: 15 MILLIGRAM, TID
     Route: 065
     Dates: start: 20160907
  3. RUZURGI [Suspect]
     Active Substance: AMIFAMPRIDINE
     Dosage: 20 MILLIGRAM, TID
     Route: 065
     Dates: start: 20170419
  4. RUZURGI [Suspect]
     Active Substance: AMIFAMPRIDINE
     Dosage: 20 MILLIGRAM, QID
     Route: 065
     Dates: start: 20180703
  5. MESTINON [Concomitant]
     Active Substance: PYRIDOSTIGMINE BROMIDE
     Indication: Product used for unknown indication
     Dosage: 180 MILLIGRAM, QID
     Route: 065
  6. MESTINON [Concomitant]
     Active Substance: PYRIDOSTIGMINE BROMIDE
     Dosage: 210 MILLIGRAM FOUR TIMES DAILY
  7. MESTINON [Concomitant]
     Active Substance: PYRIDOSTIGMINE BROMIDE
     Indication: Product used for unknown indication
     Dosage: 180 MG AT BEDTIME

REACTIONS (1)
  - Respiratory failure [Recovered/Resolved]

NARRATIVE: CASE EVENT DATE: 20200129
